FAERS Safety Report 10420170 (Version 1)
Quarter: 2014Q3

REPORT INFORMATION
  Report Type: Spontaneous
  Country: US (occurrence: None)
  Receive Date: 20140701
  Receipt Date: 20140701
  Transmission Date: 20150326
  Serious: No
  Sender: FDA-Public Use
  Company Number: 1000067450

PATIENT
  Sex: Female

DRUGS (2)
  1. MUCILEX (MUCILEX) [Concomitant]
  2. LINZESS [Suspect]
     Active Substance: LINACLOTIDE
     Dates: start: 20140511

REACTIONS (1)
  - Diarrhoea [None]

NARRATIVE: CASE EVENT DATE: 201405
